FAERS Safety Report 10035379 (Version 1)
Quarter: 2014Q1

REPORT INFORMATION
  Report Type: Spontaneous
  Country: US (occurrence: US)
  Receive Date: 20140325
  Receipt Date: 20140325
  Transmission Date: 20141002
  Serious: No
  Sender: FDA-Public Use
  Company Number: US-PFIZER INC-2014083168

PATIENT
  Age: 3 Year
  Sex: Female

DRUGS (1)
  1. ADVIL [Suspect]
     Dosage: 200 MG, ONCE
     Dates: start: 201403, end: 201403

REACTIONS (2)
  - Accidental exposure to product by child [Unknown]
  - Vomiting [Unknown]
